FAERS Safety Report 4558266-3 (Version None)
Quarter: 2005Q1

REPORT INFORMATION
  Report Type: 
  Country: None (occurrence: None)
  Receive Date: 20050121
  Receipt Date: 20050111
  Transmission Date: 20050727
  Serious: Yes (Hospitalization)
  Sender: FDA-Public Use
  Company Number: BE-BRISTOL-MYERS SQUIBB COMPANY-12820858

PATIENT
  Age: 70 Year
  Sex: Male
  Weight: 62 kg

DRUGS (3)
  1. PARAPLATIN [Suspect]
     Indication: MESOTHELIOMA
     Route: 042
     Dates: start: 20041208, end: 20041208
  2. ALIMTA [Suspect]
     Indication: MESOTHELIOMA
     Route: 042
     Dates: start: 20041208, end: 20041208
  3. IMITREX [Concomitant]
     Indication: MIGRAINE

REACTIONS (2)
  - ENTERITIS [None]
  - FEBRILE NEUTROPENIA [None]
